FAERS Safety Report 24040249 (Version 2)
Quarter: 2024Q3

REPORT INFORMATION
  Report Type: Spontaneous
  Country: US (occurrence: US)
  Receive Date: 20240702
  Receipt Date: 20240712
  Transmission Date: 20241016
  Serious: No
  Sender: SANOFI AVENTIS
  Company Number: US-SA-SAC20240701001124

PATIENT
  Age: 4 Year
  Sex: Male
  Weight: 11.294 kg

DRUGS (6)
  1. DUPIXENT [Suspect]
     Active Substance: DUPILUMAB
     Indication: Dermatitis atopic
     Dosage: 200 MG, Q4W
     Route: 058
  2. DUPIXENT [Suspect]
     Active Substance: DUPILUMAB
     Indication: Asthma
  3. OMNITROPE [Concomitant]
     Active Substance: SOMATROPIN
     Dosage: UNK
  4. CHILDREN^S CETIRIZINE HYDROCHLORIDE [Concomitant]
     Dosage: UNK
  5. EPIPEN JR [Concomitant]
     Active Substance: EPINEPHRINE
     Dosage: UNK
  6. VITAMINS NOS [Concomitant]
     Active Substance: VITAMINS
     Dosage: UNK

REACTIONS (1)
  - Product administered to patient of inappropriate age [Unknown]
